FAERS Safety Report 4299946-7 (Version None)
Quarter: 2004Q1

REPORT INFORMATION
  Report Type: 
  Country: None (occurrence: None)
  Receive Date: 20040218
  Receipt Date: 20040204
  Transmission Date: 20041129
  Serious: Yes (Other)
  Sender: FDA-Public Use
  Company Number: HK-JNJFOC-20040104302

PATIENT
  Age: 65 Year
  Sex: Male
  Weight: 47 kg

DRUGS (8)
  1. REMICADE [Suspect]
     Indication: SPONDYLITIS
     Dosage: 130 MG, 1 IN 1 AS NECESSARY, INTRAVENOUS DRIP
     Route: 041
     Dates: start: 20031029, end: 20031029
  2. REMICADE [Suspect]
     Indication: SPONDYLITIS
     Dosage: 130 MG, 1 IN 1 AS NECESSARY, INTRAVENOUS DRIP
     Route: 041
     Dates: start: 20031112, end: 20031112
  3. REMICADE [Suspect]
     Indication: SPONDYLITIS
     Dosage: 130 MG, 1 IN 1 AS NECESSARY, INTRAVENOUS DRIP
     Route: 041
     Dates: start: 20031208, end: 20031208
  4. METHOTREXATE [Concomitant]
  5. FOLIC ACID [Concomitant]
  6. DOLOGESIC (ALL OTHER THERAPEUTIC PRODUCTS) TABLETS [Concomitant]
  7. CELEBREX [Concomitant]
  8. FAMOTIDINE [Concomitant]

REACTIONS (7)
  - BLOOD GLUCOSE DECREASED [None]
  - BLOOD SODIUM DECREASED [None]
  - GOUTY ARTHRITIS [None]
  - INGROWING NAIL [None]
  - INGUINAL HERNIA [None]
  - PULMONARY TUBERCULOSIS [None]
  - WHITE BLOOD CELL COUNT DECREASED [None]
